FAERS Safety Report 7411807-0 (Version None)
Quarter: 2011Q2

REPORT INFORMATION
  Report Type: 
  Country: None (occurrence: None)
  Receive Date: 20110413
  Receipt Date: 20110127
  Transmission Date: 20111010
  Serious: Yes (Death)
  Sender: FDA-Public Use
  Company Number: US-BRISTOL-MYERS SQUIBB COMPANY-15514011

PATIENT
  Age: 71 Year
  Sex: Male

DRUGS (2)
  1. BENADRYL [Concomitant]
     Indication: PREMEDICATION
  2. ERBITUX [Suspect]
     Indication: HEAD AND NECK CANCER
     Dosage: LOAD DOSE:880 MG 200MG VIALS + 1 100MG VIALS LOT#:09C00552A,EXPDT:11/2012

REACTIONS (1)
  - INFUSION RELATED REACTION [None]
